FAERS Safety Report 8434105-5 (Version None)
Quarter: 2012Q2

REPORT INFORMATION
  Report Type: 
  Country: None (occurrence: None)
  Receive Date: 20120613
  Receipt Date: 20120605
  Transmission Date: 20120825
  Serious: Yes (Other)
  Sender: FDA-Public Use
  Company Number: FR-B.I. PHARMACEUTICALS,INC./RIDGEFIELD-2012-EU-03038GD

PATIENT
  Sex: Male

DRUGS (2)
  1. TENOFOVIR-EMTIRICITABINE [Suspect]
     Indication: HIV INFECTION
  2. NEVIRAPINE [Suspect]
     Indication: HIV INFECTION

REACTIONS (3)
  - OEDEMA PERIPHERAL [None]
  - BONE MARROW OEDEMA [None]
  - OSTEONECROSIS [None]
